FAERS Safety Report 7402427-2 (Version None)
Quarter: 2011Q2

REPORT INFORMATION
  Report Type: 
  Country: None (occurrence: None)
  Receive Date: 20110408
  Receipt Date: 20110330
  Transmission Date: 20111010
  Serious: Yes (Hospitalization, Disabling)
  Sender: FDA-Public Use
  Company Number: PHHY2011DE28080

PATIENT
  Sex: Female

DRUGS (5)
  1. QUILONIUM-R [Suspect]
     Dosage: 675 MG, DAILY
     Dates: start: 20070101
  2. FOLATE SODIUM [Concomitant]
     Dosage: 5 MG, UNK
     Dates: start: 20101101, end: 20101203
  3. RISPERDAL [Concomitant]
     Dosage: 4 MG, UNK
     Dates: start: 20070101
  4. TRILEPTAL [Suspect]
     Dosage: 600 MG, DAILY
     Route: 048
     Dates: start: 20070101, end: 20101118
  5. AKINETON [Concomitant]
     Dosage: 4 MG, UNK
     Dates: start: 20070101, end: 20101118

REACTIONS (6)
  - DRUG EXPOSURE DURING PREGNANCY [None]
  - VAGINAL HAEMORRHAGE [None]
  - PRURITUS [None]
  - GARDNERELLA INFECTION [None]
  - ABORTION INCOMPLETE [None]
  - BURNING SENSATION [None]
